FAERS Safety Report 5320248-1 (Version None)
Quarter: 2007Q2

REPORT INFORMATION
  Report Type: 
  Country: None (occurrence: None)
  Receive Date: 20070509
  Receipt Date: 20070507
  Transmission Date: 20071010
  Serious: Yes (Other)
  Sender: FDA-Public Use
  Company Number: US-ASTRAZENECA-2007UW10876

PATIENT
  Sex: Female

DRUGS (3)
  1. TAMOXIFEN CITRATE [Suspect]
     Indication: BREAST CANCER
     Route: 048
  2. ACTONEL [Concomitant]
  3. LIPITOR [Concomitant]

REACTIONS (1)
  - MONOPLEGIA [None]
